FAERS Safety Report 18674750 (Version 4)
Quarter: 2021Q1

REPORT INFORMATION
  Report Type: Report from Study
  Country: KR (occurrence: KR)
  Receive Date: 20201228
  Receipt Date: 20210111
  Transmission Date: 20210419
  Serious: Yes (Hospitalization)
  Sender: FDA-Public Use
  Company Number: KR-CELLTRION INC.-2020KR032610

PATIENT

DRUGS (38)
  1. TRUXIMA [Suspect]
     Active Substance: RITUXIMAB-ABBS
     Dosage: 785 MG, QD (500 MG/M2) / D1, TRUXIMA+MTX#5
     Route: 042
     Dates: start: 20201102
  2. METHOTREXATE. [Suspect]
     Active Substance: METHOTREXATE
     Dosage: TRUXIMA+MTX#4
     Dates: start: 20201019
  3. SOLONDO [Concomitant]
     Active Substance: PREDNISOLONE
     Indication: ADRENAL INSUFFICIENCY
     Dosage: 5 MG, QD
     Route: 048
     Dates: start: 20200907
  4. INDENOL [Concomitant]
     Active Substance: PROPRANOLOL HYDROCHLORIDE
     Indication: ESSENTIAL TREMOR
     Dosage: 10 MG, BID
     Route: 048
     Dates: start: 20200921
  5. CAFSOL [Concomitant]
     Indication: PROPHYLAXIS
     Dosage: 500 ML, QD
     Route: 042
     Dates: start: 20201229
  6. TRUXIMA [Suspect]
     Active Substance: RITUXIMAB-ABBS
     Dosage: 785 MG (500 MG/M2) / D1, TRUXIMA+MTX#3
     Route: 042
     Dates: start: 20201006
  7. VANCOCIN [Concomitant]
     Active Substance: VANCOMYCIN HYDROCHLORIDE
     Indication: PROPHYLAXIS
     Dosage: 125 MG, QID
     Route: 048
     Dates: start: 20201211
  8. LIPITOR [Concomitant]
     Active Substance: ATORVASTATIN CALCIUM
     Indication: PROPHYLAXIS
     Dosage: 10 MG, QD
     Route: 048
     Dates: start: 20200731
  9. EPILATAM [Concomitant]
     Indication: ESSENTIAL TREMOR
     Dosage: 500 MG, BID
     Route: 048
     Dates: start: 20200805
  10. TRUXIMA [Suspect]
     Active Substance: RITUXIMAB-ABBS
     Dosage: 785 MG (500 MG/M2) / D1, TRUXIMA+MTX#2
     Route: 042
     Dates: start: 20200916
  11. METHOTREXATE. [Suspect]
     Active Substance: METHOTREXATE
     Dosage: UNK, CYCLIC (6CYCLE)
     Route: 042
     Dates: start: 20201121
  12. VANCOCIN [Concomitant]
     Active Substance: VANCOMYCIN HYDROCHLORIDE
     Indication: PSEUDOMEMBRANOUS COLITIS
  13. MEGACE F [Concomitant]
     Indication: DECREASED APPETITE
  14. GASTIIN CR [Concomitant]
     Indication: PROPHYLAXIS AGAINST GASTROINTESTINAL ULCER
     Dosage: 1 TABLET, QD
     Route: 048
     Dates: start: 20201120
  15. TRUXIMA [Suspect]
     Active Substance: RITUXIMAB-ABBS
     Dosage: UNK, CYCLIC (7CYCLE)
     Dates: start: 20201210
  16. METHOTREXATE. [Suspect]
     Active Substance: METHOTREXATE
     Dosage: TRUXIMA+MTX#3
     Dates: start: 20201006
  17. METHOTREXATE. [Suspect]
     Active Substance: METHOTREXATE
     Dosage: 5460 MG, QD (DAY 2), 5460 UNK
     Route: 042
     Dates: start: 20201103
  18. ASPIRIN. [Concomitant]
     Active Substance: ASPIRIN
     Indication: THROMBOSIS PROPHYLAXIS
     Dosage: 100 MG, QD
     Route: 048
     Dates: start: 20200728
  19. PANTOLINE [Concomitant]
     Active Substance: PANTOPRAZOLE SODIUM
     Indication: PROPHYLAXIS AGAINST GASTROINTESTINAL ULCER
     Dosage: 1 TABLET, QD
     Route: 048
     Dates: start: 20200829
  20. CAFSOL [Concomitant]
     Indication: DECREASED APPETITE
     Dosage: 500 ML, QD
     Route: 042
     Dates: start: 20201205, end: 20201205
  21. TRUXIMA [Suspect]
     Active Substance: RITUXIMAB-ABBS
     Dosage: UNK, CYCLIC (6CYCLE)
     Route: 042
     Dates: start: 20201120
  22. METHOTREXATE. [Suspect]
     Active Substance: METHOTREXATE
     Dosage: TRUXIMA+MTX#5
     Dates: start: 20201102
  23. MEDILAC DS [Concomitant]
     Indication: PROPHYLAXIS AGAINST DIARRHOEA
     Dosage: 1 CAP, TID
     Route: 048
     Dates: start: 20201204
  24. TRUXIMA [Suspect]
     Active Substance: RITUXIMAB-ABBS
     Indication: CHEMOTHERAPY
     Dosage: 785 MG (500 MG/M2) / D1, TRUXIMA+MTX#1
     Route: 042
     Dates: start: 20200901
  25. METHOTREXATE. [Suspect]
     Active Substance: METHOTREXATE
     Dosage: TRUXIMA+MTX#2
     Dates: start: 20200916
  26. CEFTRIAXON [Concomitant]
     Active Substance: CEFTRIAXONE
     Indication: INFECTION PROPHYLAXIS
     Dosage: 2 G, QD
     Route: 042
     Dates: start: 20201121, end: 20201125
  27. PERKIN [Concomitant]
     Active Substance: CARBIDOPA\LEVODOPA
     Indication: ESSENTIAL TREMOR
     Dosage: 150 MG, TID
     Route: 048
     Dates: start: 20201021
  28. TYLENOL ER [Concomitant]
     Active Substance: ACETAMINOPHEN
     Indication: PYREXIA
     Dosage: 650 MG, QD
     Route: 048
     Dates: start: 20201203, end: 20201203
  29. TRUXIMA [Suspect]
     Active Substance: RITUXIMAB-ABBS
     Dosage: 785 MG (500 MG/M2) / D1, TRUXIMA+MTX#4
     Route: 042
     Dates: start: 20201019
  30. METHOTREXATE. [Suspect]
     Active Substance: METHOTREXATE
     Dosage: UNK
     Dates: start: 20201203
  31. METHOTREXATE. [Suspect]
     Active Substance: METHOTREXATE
     Dosage: UNK, CYCLIC (7CYCLE)
     Dates: start: 20201211
  32. CEFTRIAXONE. [Concomitant]
     Active Substance: CEFTRIAXONE
     Indication: URINARY TRACT INFECTION
     Dosage: 2 G, QD
     Route: 042
     Dates: start: 20201118, end: 20201120
  33. MEGACE F [Concomitant]
     Indication: PROPHYLAXIS
     Dosage: 1 PACK, QD
     Route: 048
     Dates: start: 20201214
  34. METHOTREXATE. [Suspect]
     Active Substance: METHOTREXATE
     Indication: CHEMOTHERAPY
     Dosage: 5460 MG (D2), TRUXIMA+MTX#1
     Route: 042
     Dates: start: 20200901
  35. DICAMAX [Concomitant]
     Indication: OSTEOPOROSIS
     Dosage: 1 TABLET, QD
     Route: 048
     Dates: start: 20200908
  36. ZOLEDRON [Concomitant]
     Active Substance: ZOLEDRONIC ACID
     Indication: OSTEOPOROSIS
     Dosage: 5 MG, QD
     Route: 042
     Dates: start: 20200909, end: 20200909
  37. DENOGAN [Concomitant]
     Active Substance: PROPACETAMOL HYDROCHLORIDE
     Indication: PYREXIA
     Dosage: 1 G, PRN
     Route: 042
     Dates: start: 20201203, end: 20201215
  38. OMAPONE PERI [Concomitant]
     Indication: DECREASED APPETITE
     Dosage: 500 ML, QD
     Route: 042
     Dates: start: 20201204, end: 20201204

REACTIONS (3)
  - Urinary tract infection [Recovered/Resolved]
  - Pseudomembranous colitis [Recovered/Resolved]
  - Overdose [Unknown]

NARRATIVE: CASE EVENT DATE: 20201118
